FAERS Safety Report 7396346-8 (Version None)
Quarter: 2011Q1

REPORT INFORMATION
  Report Type: 
  Country: None (occurrence: None)
  Receive Date: 20110325
  Receipt Date: 20110311
  Transmission Date: 20110831
  Serious: Yes (Hospitalization, Other)
  Sender: FDA-Public Use
  Company Number: 2011001294

PATIENT
  Age: 75 Year
  Sex: Male
  Weight: 50.6 kg

DRUGS (8)
  1. MUCOSAL (ACETYLCYSTEINE) [Concomitant]
  2. LAC-B [Concomitant]
  3. MEDICON (DEXTROMETHORPHAN HYDROBROMIDE) [Concomitant]
  4. MAGMITT [Concomitant]
  5. GARENOXACIN MESILATE [Concomitant]
  6. ERLOTINIB (ERLOTINIB) (TABLET) (ERLOTINIB) [Suspect]
     Indication: LUNG ADENOCARCINOMA
     Dosage: (150 MG, QD), ORAL
     Route: 048
     Dates: start: 20090924, end: 20101214
  7. GASTER D [Concomitant]
  8. LASIX [Concomitant]

REACTIONS (8)
  - INTERSTITIAL LUNG DISEASE [None]
  - CARDIAC FAILURE [None]
  - RASH [None]
  - METASTATIC NEOPLASM [None]
  - ACNE [None]
  - PERICARDIAL EFFUSION [None]
  - GOUT [None]
  - CARDIAC TAMPONADE [None]
